FAERS Safety Report 7468732-9 (Version None)
Quarter: 2011Q2

REPORT INFORMATION
  Report Type: 
  Country: None (occurrence: None)
  Receive Date: 20110510
  Receipt Date: 20110429
  Transmission Date: 20111010
  Serious: No
  Sender: FDA-Public Use
  Company Number: US-BIOGENIDEC-2011BI014390

PATIENT
  Sex: Female

DRUGS (4)
  1. AVONEX [Concomitant]
     Route: 030
  2. AVONEX [Concomitant]
     Indication: MULTIPLE SCLEROSIS
     Route: 030
     Dates: start: 20110428
  3. TYSABRI [Suspect]
     Indication: MULTIPLE SCLEROSIS
     Route: 042
     Dates: start: 20090618, end: 20110303
  4. AMPYRA [Concomitant]
     Indication: GAIT DISTURBANCE

REACTIONS (6)
  - MIGRAINE [None]
  - PAIN [None]
  - GENERAL SYMPTOM [None]
  - FATIGUE [None]
  - PYREXIA [None]
  - NAUSEA [None]
